FAERS Safety Report 7065241-6 (Version None)
Quarter: 2010Q4

REPORT INFORMATION
  Report Type: 
  Country: None (occurrence: None)
  Receive Date: 20101027
  Receipt Date: 20101015
  Transmission Date: 20110411
  Serious: Yes (Other)
  Sender: FDA-Public Use
  Company Number: US-ROCHE-717486

PATIENT
  Sex: Male
  Weight: 61.2 kg

DRUGS (1)
  1. ACCUTANE [Suspect]
     Indication: ACNE
     Route: 065
     Dates: start: 19991120, end: 20000227

REACTIONS (43)
  - ABNORMAL BEHAVIOUR [None]
  - ARTHRALGIA [None]
  - ARTHRITIS [None]
  - BACK PAIN [None]
  - BIPOLAR DISORDER [None]
  - BONE DISORDER [None]
  - CARDIAC DISORDER [None]
  - CATATONIA [None]
  - CHAPPED LIPS [None]
  - COLITIS [None]
  - DECREASED INTEREST [None]
  - DEPERSONALISATION [None]
  - DEPRESSION [None]
  - DISTURBANCE IN ATTENTION [None]
  - DRUG HYPERSENSITIVITY [None]
  - FATIGUE [None]
  - FEAR [None]
  - FEELINGS OF WORTHLESSNESS [None]
  - FLIGHT OF IDEAS [None]
  - FRACTURE [None]
  - GASTRITIS [None]
  - GASTROINTESTINAL DISORDER [None]
  - GASTROOESOPHAGEAL REFLUX DISEASE [None]
  - HAEMORRHOIDS [None]
  - HEADACHE [None]
  - HIATUS HERNIA [None]
  - IMPAIRED WORK ABILITY [None]
  - INFLAMMATORY BOWEL DISEASE [None]
  - INSOMNIA [None]
  - INTERVERTEBRAL DISC DEGENERATION [None]
  - IRRITABILITY [None]
  - LOGORRHOEA [None]
  - MENTAL DISORDER [None]
  - MORBID THOUGHTS [None]
  - NECK PAIN [None]
  - NIGHT BLINDNESS [None]
  - OESOPHAGEAL DISORDER [None]
  - PROCTITIS [None]
  - RESTLESSNESS [None]
  - SELF ESTEEM INFLATED [None]
  - SLEEP DISORDER [None]
  - SUICIDAL IDEATION [None]
  - TENDONITIS [None]
